FAERS Safety Report 9861009 (Version 3)
Quarter: 2014Q2

REPORT INFORMATION
  Report Type: Spontaneous
  Country: AU (occurrence: AU)
  Receive Date: 20140202
  Receipt Date: 20140516
  Transmission Date: 20141212
  Serious: No
  Sender: FDA-Public Use
  Company Number: AU-009507513-1401AUS009588

PATIENT
  Age: 17 Year
  Sex: Female
  Weight: 77.3 kg

DRUGS (1)
  1. IMPLANON [Suspect]
     Indication: CONTRACEPTION
     Dosage: UNK
     Route: 059
     Dates: start: 20130827, end: 20140121

REACTIONS (1)
  - Device breakage [Recovered/Resolved]
